FAERS Safety Report 21172780 (Version 2)
Quarter: 2022Q3

REPORT INFORMATION
  Report Type: Spontaneous
  Country: US (occurrence: US)
  Receive Date: 20220804
  Receipt Date: 20220805
  Transmission Date: 20221027
  Serious: No
  Sender: FDA-Public Use
  Company Number: US-PFIZER INC-PV202200020875

PATIENT
  Sex: Female

DRUGS (2)
  1. WATER [Suspect]
     Active Substance: WATER
     Dosage: UNK
  2. BOTOX [Suspect]
     Active Substance: ONABOTULINUMTOXINA
     Dosage: UNK

REACTIONS (4)
  - Product preparation error [Unknown]
  - Pain [Unknown]
  - Periorbital swelling [Unknown]
  - Hyperaesthesia [Unknown]
